FAERS Safety Report 6386774-1 (Version None)
Quarter: 2009Q4

REPORT INFORMATION
  Report Type: 
  Country: None (occurrence: None)
  Receive Date: 20091002
  Receipt Date: 20090922
  Transmission Date: 20100525
  Serious: Yes (Hospitalization)
  Sender: FDA-Public Use
  Company Number: A0809996A

PATIENT
  Age: 47 Year
  Sex: Male
  Weight: 78.6 kg

DRUGS (5)
  1. ZYBAN [Suspect]
     Indication: DRUG USE FOR UNKNOWN INDICATION
     Dosage: 150MG TWICE PER DAY
     Route: 048
  2. ASPIRIN [Concomitant]
  3. ATENOLOL [Concomitant]
  4. LIPITOR [Concomitant]
  5. PLAVIX [Concomitant]

REACTIONS (3)
  - FALL [None]
  - HEAD INJURY [None]
  - WOUND HAEMORRHAGE [None]
